FAERS Safety Report 4471375-2 (Version None)
Quarter: 2004Q4

REPORT INFORMATION
  Report Type: 
  Country: None (occurrence: None)
  Receive Date: 20041006
  Receipt Date: 20040927
  Transmission Date: 20050328
  Serious: Yes (Hospitalization)
  Sender: FDA-Public Use
  Company Number: 232883K04USA

PATIENT
  Age: 41 Year
  Sex: Female

DRUGS (1)
  1. REBIF [Suspect]
     Indication: MULTIPLE SCLEROSIS
     Dates: start: 20040528, end: 20040618

REACTIONS (8)
  - BALANCE DISORDER [None]
  - BRAIN STEM SYNDROME [None]
  - CONDITION AGGRAVATED [None]
  - INJECTION SITE PAIN [None]
  - MULTIPLE SCLEROSIS [None]
  - NYSTAGMUS [None]
  - READING DISORDER [None]
  - VERTIGO [None]
